FAERS Safety Report 8347025-1 (Version None)
Quarter: 2012Q2

REPORT INFORMATION
  Report Type: 
  Country: None (occurrence: None)
  Receive Date: 20120509
  Receipt Date: 20120502
  Transmission Date: 20120825
  Serious: Yes (Other)
  Sender: FDA-Public Use
  Company Number: PHHY2012ES027001

PATIENT
  Age: 80 Year
  Sex: Male

DRUGS (3)
  1. TASIGNA [Suspect]
     Indication: CHRONIC MYELOID LEUKAEMIA
     Dosage: 150 MG, QD
     Route: 048
     Dates: start: 20110816
  2. TASIGNA [Suspect]
     Dosage: 75 MG QD
     Route: 048
  3. ESCITALOPRAM OXALATE [Concomitant]
     Indication: DELIRIUM

REACTIONS (4)
  - PLEURAL EFFUSION [None]
  - CHEST PAIN [None]
  - ABDOMINAL PAIN [None]
  - PRURITUS [None]
